FAERS Safety Report 23860170 (Version 2)
Quarter: 2024Q2

REPORT INFORMATION
  Report Type: Report from Study
  Country: CZ (occurrence: CZ)
  Receive Date: 20240515
  Receipt Date: 20240607
  Transmission Date: 20240716
  Serious: Yes (Death)
  Sender: FDA-Public Use
  Company Number: CZ-VER-202400006

PATIENT
  Age: 66 Year
  Sex: Male

DRUGS (1)
  1. TRIPTORELIN [Suspect]
     Active Substance: TRIPTORELIN
     Indication: Prostate cancer
     Dosage: 22.5 MILLIGRAM(S), IN 24 WEEK, POWDER AND SOLVENT FOR SUSPENSION FOR INJECTION
     Route: 058
     Dates: start: 20230620

REACTIONS (1)
  - Disease progression [Fatal]

NARRATIVE: CASE EVENT DATE: 20240503
